FAERS Safety Report 20642737 (Version 2)
Quarter: 2022Q2

REPORT INFORMATION
  Report Type: Report from Study
  Country: US (occurrence: US)
  Receive Date: 20220328
  Receipt Date: 20220407
  Transmission Date: 20220720
  Serious: No
  Sender: FDA-Public Use
  Company Number: US-BRISTOL-MYERS SQUIBB COMPANY-2022-010511

PATIENT
  Sex: Female
  Weight: 95.25 kg

DRUGS (3)
  1. ELIQUIS [Suspect]
     Active Substance: APIXABAN
     Indication: Embolism venous
     Route: 048
     Dates: start: 2020
  2. VITAMIN D NOS [Concomitant]
     Active Substance: VITAMIN D NOS
     Indication: Product used for unknown indication
     Route: 065
  3. VITAMIN B-COMPLEX, PLAIN [Concomitant]
     Indication: Product used for unknown indication
     Route: 065

REACTIONS (4)
  - Limb injury [Unknown]
  - Rash macular [Unknown]
  - Contusion [Unknown]
  - Off label use [Unknown]
